FAERS Safety Report 24449406 (Version 3)
Quarter: 2025Q3

REPORT INFORMATION
  Report Type: Report from Study
  Country: US (occurrence: US)
  Receive Date: 20241017
  Receipt Date: 20250811
  Transmission Date: 20251021
  Serious: Yes (Other)
  Sender: ALEXION PHARMACEUTICALS
  Company Number: US-AstraZeneca-2024-233710

PATIENT
  Age: 71 Year
  Sex: Female

DRUGS (1)
  1. TRUQAP [Suspect]
     Active Substance: CAPIVASERTIB

REACTIONS (7)
  - Blood glucose decreased [Unknown]
  - Rash [Unknown]
  - Swelling [Unknown]
  - Blood glucose increased [Unknown]
  - Diarrhoea [Unknown]
  - Blood potassium decreased [Unknown]
  - Fatigue [Unknown]

NARRATIVE: CASE EVENT DATE: 20240418
